FAERS Safety Report 6651808-3 (Version None)
Quarter: 2010Q1

REPORT INFORMATION
  Report Type: 
  Country: None (occurrence: None)
  Receive Date: 20100323
  Receipt Date: 20100308
  Transmission Date: 20100710
  Serious: Yes (Hospitalization)
  Sender: FDA-Public Use
  Company Number: AUR-APL-2010-00696

PATIENT
  Age: 36 Year
  Sex: Male

DRUGS (4)
  1. FLUOXETINE [Suspect]
  2. ABILIFY [Suspect]
  3. ZAPONEX [Suspect]
     Dosage: 50GM-QAM-ORAL 100MG-QPM-ORAL
     Route: 048
     Dates: start: 20100126, end: 20100206
  4. ATENOLOL [Concomitant]

REACTIONS (2)
  - OXYGEN SATURATION DECREASED [None]
  - SEDATION [None]
